FAERS Safety Report 19152423 (Version 1)
Quarter: 2021Q2

REPORT INFORMATION
  Report Type: Spontaneous
  Country: US (occurrence: US)
  Receive Date: 20210419
  Receipt Date: 20210419
  Transmission Date: 20210717
  Serious: No
  Sender: FDA-Public Use
  Company Number: US-BAUSCH-BL-2021-009715

PATIENT
  Age: 78 Year
  Sex: Female

DRUGS (1)
  1. TOBRAMYCIN AND DEXAMETHASONE [Suspect]
     Active Substance: DEXAMETHASONE\TOBRAMYCIN
     Indication: HORDEOLUM
     Dosage: 1 DROP IN THE RIGHT EYE
     Route: 047
     Dates: start: 20210315, end: 20210316

REACTIONS (2)
  - Lip swelling [Unknown]
  - Lip discolouration [Unknown]

NARRATIVE: CASE EVENT DATE: 20210315
